FAERS Safety Report 5314082-6 (Version None)
Quarter: 2007Q2

REPORT INFORMATION
  Report Type: 
  Country: None (occurrence: None)
  Receive Date: 20070501
  Receipt Date: 20070419
  Transmission Date: 20071010
  Serious: Yes (Hospitalization, Other)
  Sender: FDA-Public Use
  Company Number: DE-PFIZER INC-2007031860

PATIENT
  Sex: Male

DRUGS (3)
  1. CHAMPIX [Suspect]
     Indication: SMOKING CESSATION THERAPY
     Route: 048
     Dates: start: 20070101
  2. PLAVIX [Concomitant]
     Route: 048
  3. DRUG, UNSPECIFIED [Concomitant]

REACTIONS (2)
  - GRAFT THROMBOSIS [None]
  - THROMBOSIS [None]
